FAERS Safety Report 18955913 (Version 1)
Quarter: 2021Q1

REPORT INFORMATION
  Report Type: Spontaneous
  Country: BR (occurrence: BR)
  Receive Date: 20210302
  Receipt Date: 20210302
  Transmission Date: 20210420
  Serious: Yes (Other)
  Sender: FDA-Public Use
  Company Number: BR-ROCHE-2777474

PATIENT
  Age: 70 Year
  Sex: Male

DRUGS (1)
  1. ACTEMRA [Suspect]
     Active Substance: TOCILIZUMAB
     Indication: COVID-19
     Dosage: 400/20 ML
     Route: 042
     Dates: start: 20210212, end: 20210212

REACTIONS (4)
  - Intentional product use issue [Unknown]
  - Hypoxia [Unknown]
  - Tachypnoea [Unknown]
  - Off label use [Unknown]
